FAERS Safety Report 5078778-6 (Version None)
Quarter: 2006Q3

REPORT INFORMATION
  Report Type: 
  Country: None (occurrence: None)
  Receive Date: 20060809
  Receipt Date: 20060802
  Transmission Date: 20061208
  Serious: Yes (Hospitalization)
  Sender: FDA-Public Use
  Company Number: 2006-0103-EUR 189588

PATIENT
  Age: 33 Year
  Sex: Male
  Weight: 113.3993 kg

DRUGS (1)
  1. ORAQIX [Suspect]
     Indication: DENTAL TREATMENT
     Dosage: (1 DOSAGE FORMS,ONCE)
     Dates: start: 20060801, end: 20060801

REACTIONS (5)
  - DEPRESSED LEVEL OF CONSCIOUSNESS [None]
  - FALL [None]
  - NAUSEA [None]
  - SOMNOLENCE [None]
  - WHEEZING [None]
